FAERS Safety Report 4754379-1 (Version None)
Quarter: 2005Q3

REPORT INFORMATION
  Report Type: 
  Country: None (occurrence: None)
  Receive Date: 20050829
  Receipt Date: 20050822
  Transmission Date: 20060218
  Serious: Yes (Other)
  Sender: FDA-Public Use
  Company Number: PHEH2005US09325

PATIENT
  Age: 64 Year
  Sex: Female

DRUGS (1)
  1. FEMARA [Suspect]
     Indication: BREAST CANCER
     Dosage: 2.5 MG, QD
     Route: 048
     Dates: start: 20050401, end: 20050401

REACTIONS (8)
  - ANAPHYLACTIC REACTION [None]
  - DIZZINESS [None]
  - FAECAL INCONTINENCE [None]
  - FEELING ABNORMAL [None]
  - OEDEMA MOUTH [None]
  - SWELLING FACE [None]
  - URINARY INCONTINENCE [None]
  - VULVOVAGINAL DRYNESS [None]
